FAERS Safety Report 9787910 (Version 2)
Quarter: 2014Q1

REPORT INFORMATION
  Report Type: Spontaneous
  Country: US (occurrence: US)
  Receive Date: 20131230
  Receipt Date: 20140114
  Transmission Date: 20141002
  Serious: Yes (Hospitalization)
  Sender: FDA-Public Use
  Company Number: US-ACTELION-A-US2013-92752

PATIENT
  Age: 73 Year
  Sex: Female

DRUGS (6)
  1. TRACLEER [Suspect]
     Indication: PULMONARY ARTERIAL HYPERTENSION
     Dosage: 125 MG, BID
     Route: 048
     Dates: start: 201211
  2. TRACLEER [Suspect]
     Dosage: 62.5 MG, BID
     Route: 048
     Dates: start: 201210, end: 201211
  3. ADCIRCA [Concomitant]
  4. COUMADIN [Concomitant]
  5. METOLAZONE [Concomitant]
  6. LASIX [Concomitant]

REACTIONS (1)
  - Renal disorder [Unknown]
